FAERS Safety Report 4329922-7 (Version None)
Quarter: 2004Q1

REPORT INFORMATION
  Report Type: 
  Country: None (occurrence: None)
  Receive Date: 20040329
  Receipt Date: 20040316
  Transmission Date: 20041129
  Serious: Yes (Other)
  Sender: FDA-Public Use
  Company Number: DE-JNJFOC-20040300548

PATIENT
  Age: 35 Year
  Sex: Female
  Weight: 71 kg

DRUGS (3)
  1. RISPERDAL CONSTA [Suspect]
     Indication: SCHIZOPHRENIA
     Dosage: SEE IMAGE
     Route: 030
     Dates: start: 20031215, end: 20040312
  2. ZOLOFT [Concomitant]
  3. VENLAFAXINE HCL [Concomitant]

REACTIONS (1)
  - LEUKOCYTOSIS [None]
